FAERS Safety Report 8810839 (Version 1)
Quarter: 2012Q4

REPORT INFORMATION
  Report Type: 
  Country: US (occurrence: US)
  Receive Date: 20120927
  Receipt Date: 20120927
  Transmission Date: 20130627
  Serious: Yes (Other)
  Sender: FDA-Public Use
  Company Number: US-MYLANLABS-2012S1003771

PATIENT
  Age: 78 Year
  Sex: Female

DRUGS (4)
  1. FOSAMAX [Suspect]
     Dates: start: 1995, end: 200802
  2. ALENDRONATE SODIUM [Suspect]
     Dates: start: 200802, end: 200809
  3. ALENDRONATE SODIUM [Suspect]
     Dates: start: 200809, end: 200910
  4. RECLAST [Suspect]
     Dates: start: 200911

REACTIONS (2)
  - Femur fracture [Unknown]
  - Low turnover osteopathy [Unknown]
